FAERS Safety Report 19661385 (Version 2)
Quarter: 2021Q3

REPORT INFORMATION
  Report Type: Spontaneous
  Country: US (occurrence: US)
  Receive Date: 20210805
  Receipt Date: 20210826
  Transmission Date: 20211014
  Serious: Yes (Other)
  Sender: FDA-Public Use
  Company Number: US-PFIZER INC-202100955919

PATIENT
  Age: 74 Year
  Sex: Female

DRUGS (1)
  1. IBRANCE [Suspect]
     Active Substance: PALBOCICLIB
     Indication: BREAST CANCER FEMALE
     Dosage: 125 MG, CYCLIC (ONCE A DAY 3 WEEK ON AND 1 WEEK OFF) (QDX21 DAYS)
     Route: 048
     Dates: start: 20210611

REACTIONS (3)
  - White blood cell count decreased [Unknown]
  - Neutropenia [Unknown]
  - Product dose omission issue [Unknown]

NARRATIVE: CASE EVENT DATE: 2021
